FAERS Safety Report 11226459 (Version 5)
Quarter: 2015Q4

REPORT INFORMATION
  Report Type: Report from Study
  Country: US (occurrence: US)
  Receive Date: 20150629
  Receipt Date: 20151020
  Transmission Date: 20160304
  Serious: Yes (Death, Hospitalization)
  Sender: FDA-Public Use
  Company Number: US-ACTELION-A-NJ2015-112971

PATIENT
  Age: 64 Year
  Sex: Female

DRUGS (4)
  1. ADCIRCA [Concomitant]
     Active Substance: TADALAFIL
  2. VELETRI [Suspect]
     Active Substance: EPOPROSTENOL
     Indication: PULMONARY HYPERTENSION
     Dosage: 24 NG/KG, PER MIN
     Route: 042
     Dates: start: 20101123
  3. ASPIRIN. [Concomitant]
     Active Substance: ASPIRIN
  4. VELETRI [Suspect]
     Active Substance: EPOPROSTENOL
     Dosage: 28 NG/KG, PRN
     Route: 042
     Dates: start: 20101222

REACTIONS (12)
  - Oedema [Unknown]
  - Death [Fatal]
  - Pulmonary arterial hypertension [Unknown]
  - Fluid overload [Unknown]
  - Asthenia [Unknown]
  - Hypotension [Unknown]
  - Fluid retention [Unknown]
  - Dyspnoea [Unknown]
  - Chest pain [Unknown]
  - Blood sodium increased [Unknown]
  - Vomiting [Unknown]
  - Device issue [Unknown]

NARRATIVE: CASE EVENT DATE: 20151008
